FAERS Safety Report 14899573 (Version 1)
Quarter: 2018Q2

REPORT INFORMATION
  Report Type: Spontaneous
  Country: TR (occurrence: TR)
  Receive Date: 20180516
  Receipt Date: 20180516
  Transmission Date: 20180711
  Serious: Yes (Hospitalization, Other)
  Sender: FDA-Public Use
  Company Number: TR-ALKEM LABORATORIES LIMITED-TR-ALKEM-2018-01590

PATIENT
  Age: 49 Year
  Sex: Male

DRUGS (9)
  1. QUETIAPINE FUMARATE. [Suspect]
     Active Substance: QUETIAPINE FUMARATE
     Indication: PSYCHOTIC SYMPTOM
     Dosage: 200 MG, QD, FIRST DAY OF ADMISSION
     Route: 065
  2. ZUCLOPENTHIXOL 50 MG/ML [Suspect]
     Active Substance: ZUCLOPENTHIXOL HYDROCHLORIDE
     Indication: SEDATION
     Dosage: 50 MG/ML ON FIRST DAY OF ADMISSION
     Route: 030
  3. HALOPERIDOL. [Suspect]
     Active Substance: HALOPERIDOL
     Indication: AGITATION
     Dosage: FIRST DAY OF ADMISSION
     Route: 030
  4. CLONAZEPAM. [Concomitant]
     Active Substance: CLONAZEPAM
     Indication: PRODUCT USED FOR UNKNOWN INDICATION
     Dosage: FIRST DAY OF ADMISSION
     Route: 065
  5. OLANZAPINE. [Suspect]
     Active Substance: OLANZAPINE
     Indication: PSYCHOTIC SYMPTOM
     Dosage: 20 MG, QD, SECOND DAY OF ADMISSION
     Route: 065
  6. CHLORPROMAZINE. [Suspect]
     Active Substance: CHLORPROMAZINE
     Dosage: FIRST DAY OF ADMISSION
     Route: 030
  7. HALOPERIDOL. [Suspect]
     Active Substance: HALOPERIDOL
     Dosage: SECOND DAY OF ADMISSION
     Route: 030
  8. CHLORPROMAZINE. [Suspect]
     Active Substance: CHLORPROMAZINE
     Indication: PSYCHOTIC SYMPTOM
     Dosage: 25 MG, UNK, FIRST DAY OF ADMISSION
     Route: 030
  9. HALOPERIDOL. [Suspect]
     Active Substance: HALOPERIDOL
     Indication: PSYCHOTIC SYMPTOM
     Dosage: 5 MG, UNK, FIRST DAY OF ADMISSION
     Route: 030

REACTIONS (3)
  - Neuroleptic malignant syndrome [Recovering/Resolving]
  - Intentional self-injury [None]
  - International normalised ratio increased [None]
